FAERS Safety Report 18729465 (Version 1)
Quarter: 2021Q1

REPORT INFORMATION
  Report Type: Spontaneous
  Country: US (occurrence: US)
  Receive Date: 20210111
  Receipt Date: 20210111
  Transmission Date: 20210419
  Serious: No
  Sender: FDA-Public Use
  Company Number: None

PATIENT
  Age: 44 Year
  Sex: Female
  Weight: 78.75 kg

DRUGS (9)
  1. ADDERALL XR [Concomitant]
     Active Substance: AMPHETAMINE ASPARTATE\AMPHETAMINE SULFATE\DEXTROAMPHETAMINE SACCHARATE\DEXTROAMPHETAMINE SULFATE
  2. MAGNESIUM LACTATE [Concomitant]
     Active Substance: MAGNESIUM LACTATE
  3. AJOVY [Suspect]
     Active Substance: FREMANEZUMAB-VFRM
     Indication: MIGRAINE PROPHYLAXIS
     Dosage: ?          QUANTITY:1 INJECTION(S);OTHER FREQUENCY:MONTHLY;?
     Route: 058
     Dates: start: 20201009, end: 20210107
  4. VITAMIN B2 [Concomitant]
     Active Substance: RIBOFLAVIN
  5. COENZYME Q10 [Concomitant]
     Active Substance: DIETARY SUPPLEMENT\UBIDECARENONE
  6. MONTELUKAST [Concomitant]
     Active Substance: MONTELUKAST SODIUM
  7. TOPIRAMATE. [Concomitant]
     Active Substance: TOPIRAMATE
  8. RIMEGEPANT. [Concomitant]
     Active Substance: RIMEGEPANT
  9. OMEGA 3 FISH OIL [Concomitant]
     Active Substance: FISH OIL\OMEGA-3 FATTY ACIDS

REACTIONS (2)
  - Onychoclasis [None]
  - Alopecia [None]

NARRATIVE: CASE EVENT DATE: 20201023
